FAERS Safety Report 6754683-1 (Version None)
Quarter: 2010Q2

REPORT INFORMATION
  Report Type: 
  Country: None (occurrence: None)
  Receive Date: 20100603
  Receipt Date: 20100521
  Transmission Date: 20101027
  Serious: Yes (Life-Threatening, Hospitalization)
  Sender: FDA-Public Use
  Company Number: DE-MYLANLABS-2010S1009233

PATIENT
  Age: 55 Year
  Sex: Female
  Weight: 134 kg

DRUGS (1)
  1. CIPROFLOXACIN [Suspect]
     Indication: EYE INFLAMMATION
     Route: 048
     Dates: start: 20100429, end: 20100509

REACTIONS (2)
  - RENAL FAILURE ACUTE [None]
  - RENAL TUBULAR DISORDER [None]
